FAERS Safety Report 24371518 (Version 1)
Quarter: 2024Q3

REPORT INFORMATION
  Report Type: Spontaneous
  Country: NL (occurrence: None)
  Receive Date: 20240927
  Receipt Date: 20240927
  Transmission Date: 20241017
  Serious: Yes (Hospitalization, Other)
  Sender: UNICHEM
  Company Number: NL-Unichem Pharmaceuticals (USA) Inc-UCM202409-001186

PATIENT
  Age: 57 Year
  Sex: Female

DRUGS (2)
  1. METFORMIN HYDROCHLORIDE [Suspect]
     Active Substance: METFORMIN HYDROCHLORIDE
     Indication: Diabetes mellitus
  2. GLICLAZIDE [Concomitant]
     Active Substance: GLICLAZIDE
     Indication: Diabetes mellitus

REACTIONS (7)
  - Acute kidney injury [Recovering/Resolving]
  - Toxicity to various agents [Unknown]
  - Lactic acidosis [Recovered/Resolved]
  - Dehydration [Recovering/Resolving]
  - Hypoglycaemia [Recovering/Resolving]
  - Vomiting [Recovering/Resolving]
  - Diarrhoea [Recovering/Resolving]
